FAERS Safety Report 11735610 (Version 1)
Quarter: 2015Q4

REPORT INFORMATION
  Report Type: Spontaneous
  Country: US (occurrence: None)
  Receive Date: 20151112
  Receipt Date: 20151112
  Transmission Date: 20160304
  Serious: Yes (Disabling)
  Sender: FDA-Public Use
  Company Number: None

PATIENT
  Age: 17 Year
  Sex: Female

DRUGS (2)
  1. CIPRO [Suspect]
     Active Substance: CIPROFLOXACIN HYDROCHLORIDE
     Indication: URINARY TRACT INFECTION
     Dosage: 1 PILL
     Route: 048
     Dates: start: 20100301, end: 20100304
  2. MARIJUANA [Concomitant]
     Active Substance: CANNABIS SATIVA SUBSP. INDICA TOP

REACTIONS (13)
  - Spinal pain [None]
  - Visual impairment [None]
  - Upper limb fracture [None]
  - Bedridden [None]
  - Vomiting [None]
  - Rash [None]
  - Paraesthesia [None]
  - Pain in extremity [None]
  - Fall [None]
  - Joint dislocation [None]
  - Unevaluable event [None]
  - Weight decreased [None]
  - Toxicity to various agents [None]

NARRATIVE: CASE EVENT DATE: 20100301
